FAERS Safety Report 17972849 (Version 1)
Quarter: 2020Q2

REPORT INFORMATION
  Report Type: Spontaneous
  Country: US (occurrence: US)
  Receive Date: 20200630
  Receipt Date: 20200630
  Transmission Date: 20200714
  Serious: No
  Sender: FDA-Public Use
  Company Number: None

PATIENT
  Sex: Male
  Weight: 101.9 kg

DRUGS (3)
  1. LOMUSTINE (CCNU) [Suspect]
     Active Substance: LOMUSTINE
  2. PROCARBAZINE [Suspect]
     Active Substance: PROCARBAZINE
  3. VINCRISTINE SULFATE 2MG [Suspect]
     Active Substance: VINCRISTINE SULFATE

REACTIONS (2)
  - White blood cell count decreased [None]
  - Neutrophil count decreased [None]

NARRATIVE: CASE EVENT DATE: 20200526
